FAERS Safety Report 6350818-3 (Version None)
Quarter: 2009Q3

REPORT INFORMATION
  Report Type: 
  Country: None (occurrence: None)
  Receive Date: 20090912
  Receipt Date: 20090622
  Transmission Date: 20100115
  Serious: No
  Sender: FDA-Public Use
  Company Number: US-ABBOTT-07P-163-0368148-00

PATIENT
  Sex: Female
  Weight: 69.916 kg

DRUGS (9)
  1. HUMIRA [Suspect]
     Indication: PSORIATIC ARTHROPATHY
     Route: 058
     Dates: start: 20070301
  2. HUMIRA [Suspect]
     Dosage: PRE-FILLED SYRINGE
     Route: 058
     Dates: start: 20060901, end: 20070301
  3. HYDROCODONE BITARTRATE [Concomitant]
     Indication: DRUG USE FOR UNKNOWN INDICATION
  4. CALCIUM CITRATE [Concomitant]
     Indication: DRUG USE FOR UNKNOWN INDICATION
  5. MELOXICAM [Concomitant]
     Indication: DRUG USE FOR UNKNOWN INDICATION
  6. DOXEPIN HCL [Concomitant]
     Indication: DRUG USE FOR UNKNOWN INDICATION
  7. FAMOTIDINE [Concomitant]
     Indication: DRUG USE FOR UNKNOWN INDICATION
  8. NATURAL LAXATIVE [Concomitant]
     Indication: DRUG USE FOR UNKNOWN INDICATION
  9. SPIRIVA [Concomitant]
     Indication: DRUG USE FOR UNKNOWN INDICATION

REACTIONS (1)
  - INCORRECT DOSE ADMINISTERED [None]
